FAERS Safety Report 5803882-1 (Version None)
Quarter: 2008Q3

REPORT INFORMATION
  Report Type: 
  Country: None (occurrence: None)
  Receive Date: 20080707
  Receipt Date: 20080627
  Transmission Date: 20090109
  Serious: Yes (Disabling)
  Sender: FDA-Public Use
  Company Number: 028-21880-08021204

PATIENT
  Age: 68 Year
  Sex: Female

DRUGS (1)
  1. REVLIMID [Suspect]
     Indication: 5Q MINUS SYNDROME
     Dosage: 5 MG, 3 WEEKS ON, 1 WEEK OFF, ORAL
     Route: 048
     Dates: start: 20070502, end: 20071031

REACTIONS (6)
  - ASTHENIA [None]
  - DIARRHOEA [None]
  - EYE SWELLING [None]
  - FATIGUE [None]
  - RASH PRURITIC [None]
  - SWELLING FACE [None]
